FAERS Safety Report 14824889 (Version 3)
Quarter: 2019Q1

REPORT INFORMATION
  Report Type: Report from Study
  Country: None (occurrence: BR)
  Receive Date: 20180430
  Receipt Date: 20190222
  Transmission Date: 20190417
  Serious: Yes (Death, Hospitalization, Other)
  Sender: FDA-Public Use
  Company Number: BR-ABBVIE-18K-020-2326204-00

PATIENT
  Age: 71 Year
  Sex: Male
  Weight: 52 kg

DRUGS (6)
  1. INSULIN [Concomitant]
     Active Substance: INSULIN NOS
  2. REVANGE [Concomitant]
     Indication: PAIN
  3. NOVOMIX [Concomitant]
     Active Substance: INSULIN ASPART
     Indication: DIABETES MELLITUS
  4. DEFLAZACORT [Concomitant]
     Active Substance: DEFLAZACORT
     Indication: PAIN
  5. HUMIRA [Suspect]
     Active Substance: ADALIMUMAB
     Indication: RHEUMATOID ARTHRITIS
     Route: 058
     Dates: start: 20120721
  6. INSULIN [Concomitant]
     Active Substance: INSULIN NOS
     Indication: PRODUCT USED FOR UNKNOWN INDICATION

REACTIONS (23)
  - Hepatic mass [Unknown]
  - Encephalopathy [Not Recovered/Not Resolved]
  - Hepatic cirrhosis [Not Recovered/Not Resolved]
  - Hepatic steatosis [Recovered/Resolved]
  - Malnutrition [Unknown]
  - Pain [Unknown]
  - Renal failure [Fatal]
  - Faeces discoloured [Not Recovered/Not Resolved]
  - Hepatic neoplasm [Not Recovered/Not Resolved]
  - Asthenia [Unknown]
  - Malaise [Not Recovered/Not Resolved]
  - Renal disorder [Not Recovered/Not Resolved]
  - Joint swelling [Unknown]
  - Liver disorder [Unknown]
  - Malaise [Not Recovered/Not Resolved]
  - Ulcer haemorrhage [Not Recovered/Not Resolved]
  - Dizziness [Not Recovered/Not Resolved]
  - Immunodeficiency [Unknown]
  - Swelling [Recovered/Resolved]
  - Lung disorder [Unknown]
  - Motion sickness [Not Recovered/Not Resolved]
  - Blood glucose fluctuation [Unknown]
  - Nausea [Not Recovered/Not Resolved]

NARRATIVE: CASE EVENT DATE: 2016
